FAERS Safety Report 13127473 (Version 4)
Quarter: 2017Q2

REPORT INFORMATION
  Report Type: Report from Study
  Country: BG (occurrence: BG)
  Receive Date: 20170118
  Receipt Date: 20170428
  Transmission Date: 20170830
  Serious: Yes (Hospitalization)
  Sender: FDA-Public Use
  Company Number: BG-AMGEN-BGRCT2016156360

PATIENT
  Age: 65 Year
  Sex: Female
  Weight: 83 kg

DRUGS (9)
  1. PARACETAMOL [Concomitant]
     Active Substance: ACETAMINOPHEN
     Dosage: 500 MG, UNK
     Route: 048
     Dates: start: 201601
  2. SINTROM [Concomitant]
     Active Substance: ACENOCOUMAROL
     Dosage: 5 MG, UNK
     Route: 048
     Dates: start: 20110421
  3. ACTALIPID [Concomitant]
     Dosage: 20 MG, UNK
     Route: 048
     Dates: start: 20110421
  4. THIAMAZOLE [Concomitant]
     Active Substance: METHIMAZOLE
     Dosage: 40 MG, UNK
     Route: 048
     Dates: start: 20120610
  5. DENOSUMAB [Suspect]
     Active Substance: DENOSUMAB
     Indication: BREAST CANCER
     Dosage: 120 MG, UNK
     Route: 058
     Dates: start: 20120207, end: 20160802
  6. PROPAFENONE. [Concomitant]
     Active Substance: PROPAFENONE
     Dosage: 150 MG, UNK
     Route: 048
     Dates: start: 20110421
  7. LOSARTAN. [Concomitant]
     Active Substance: LOSARTAN
     Dosage: 25 MG, UNK
     Route: 048
     Dates: start: 20110421
  8. CALCIUM + VITAMIN D [Concomitant]
     Active Substance: CALCIUM\VITAMIN D
     Dosage: UNK
     Route: 048
     Dates: start: 20120207
  9. BISOPROLOL [Concomitant]
     Active Substance: BISOPROLOL
     Dosage: 5 UNK, UNK
     Route: 048
     Dates: start: 201602, end: 20160920

REACTIONS (1)
  - Osteitis [Recovered/Resolved]

NARRATIVE: CASE EVENT DATE: 20160919
